FAERS Safety Report 6341690-6 (Version None)
Quarter: 2009Q3

REPORT INFORMATION
  Report Type: 
  Country: None (occurrence: None)
  Receive Date: 20090902
  Receipt Date: 20090902
  Transmission Date: 20100115
  Serious: Yes (Other)
  Sender: FDA-Public Use
  Company Number: None

PATIENT
  Age: 45 Year
  Sex: Female
  Weight: 63.5036 kg

DRUGS (6)
  1. LITHIUM CARBONATE [Suspect]
     Indication: BIPOLAR DISORDER
     Dosage: 300MG BID PO CHRONIC USE
     Route: 048
  2. MODALIFIL [Concomitant]
  3. FLUOXETINE [Concomitant]
  4. LAMOTRIGINE [Concomitant]
  5. GABAPENTIN [Concomitant]
  6. SEROQUEL [Concomitant]

REACTIONS (3)
  - PAPILLOEDEMA [None]
  - VISION BLURRED [None]
  - VISUAL IMPAIRMENT [None]
